FAERS Safety Report 10042114 (Version 1)
Quarter: 2014Q1

REPORT INFORMATION
  Report Type: Spontaneous
  Country: US (occurrence: US)
  Receive Date: 20140327
  Receipt Date: 20140327
  Transmission Date: 20141002
  Serious: Yes (Other)
  Sender: FDA-Public Use
  Company Number: US-BAYER-2014-045523

PATIENT
  Age: 19 Year
  Sex: Female
  Weight: 67.12 kg

DRUGS (2)
  1. YASMIN [Suspect]
  2. IBUPROFEN [Concomitant]
     Indication: PAIN

REACTIONS (1)
  - Deep vein thrombosis [Recovered/Resolved]
